FAERS Safety Report 13909698 (Version 3)
Quarter: 2017Q4

REPORT INFORMATION
  Report Type: Report from Study
  Country: GB (occurrence: GB)
  Receive Date: 20170828
  Receipt Date: 20171105
  Transmission Date: 20180320
  Serious: Yes (Life-Threatening, Hospitalization, Other)
  Sender: FDA-Public Use
  Company Number: GB-BRISTOL-MYERS SQUIBB COMPANY-BMS-2017-054927

PATIENT
  Sex: Female

DRUGS (1)
  1. ABATACEPT [Suspect]
     Active Substance: ABATACEPT
     Indication: RHEUMATOID ARTHRITIS
     Dosage: 125 MG, QWK
     Route: 058
     Dates: end: 201702

REACTIONS (8)
  - Sepsis [Unknown]
  - Lower respiratory tract infection [Unknown]
  - Sinusitis [Unknown]
  - Ulcer haemorrhage [Unknown]
  - Peritonitis [Unknown]
  - Adverse drug reaction [Unknown]
  - Off label use [Unknown]
  - Pneumonia [Unknown]
